FAERS Safety Report 14829646 (Version 1)
Quarter: 2018Q2

REPORT INFORMATION
  Report Type: Spontaneous
  Country: US (occurrence: US)
  Receive Date: 20180430
  Receipt Date: 20180430
  Transmission Date: 20180711
  Serious: No
  Sender: FDA-Public Use
  Company Number: US-BAUSCH-BL-2017-019110

PATIENT
  Age: 81 Year
  Sex: Male

DRUGS (1)
  1. LOTEMAX [Suspect]
     Active Substance: LOTEPREDNOL ETABONATE
     Indication: CORNEAL TRANSPLANT
     Dosage: 1 DROP EACH AT BEDTIME
     Route: 047
     Dates: start: 2008

REACTIONS (6)
  - Asthenopia [Unknown]
  - Reading disorder [Not Recovered/Not Resolved]
  - Vision blurred [Not Recovered/Not Resolved]
  - Eye irritation [Unknown]
  - Bacterial infection [Unknown]
  - Eye swelling [Unknown]

NARRATIVE: CASE EVENT DATE: 2008
